FAERS Safety Report 9753146 (Version 3)
Quarter: 2015Q3

REPORT INFORMATION
  Report Type: Spontaneous
  Country: US (occurrence: US)
  Receive Date: 20131213
  Receipt Date: 20150805
  Transmission Date: 20151125
  Serious: No
  Sender: FDA-Public Use
  Company Number: US-GILEAD-2010-0026350

PATIENT
  Age: 73 Year
  Sex: Male
  Weight: 122.47 kg

DRUGS (22)
  1. LETAIRIS [Suspect]
     Active Substance: AMBRISENTAN
     Indication: PULMONARY ARTERIAL HYPERTENSION
     Route: 048
     Dates: start: 20090212
  2. PRINIVIL [Concomitant]
     Active Substance: LISINOPRIL
  3. VISTARIL [Concomitant]
     Active Substance: HYDROXYZINE PAMOATE
  4. ALBUTEROL. [Concomitant]
     Active Substance: ALBUTEROL
  5. LACTULOSE. [Concomitant]
     Active Substance: LACTULOSE
  6. DEMADEX [Concomitant]
     Active Substance: TORSEMIDE
  7. HYTRIN [Concomitant]
     Active Substance: TERAZOSIN HYDROCHLORIDE
  8. ULTRAM [Concomitant]
     Active Substance: TRAMADOL HYDROCHLORIDE
  9. ASPIRIN. [Concomitant]
     Active Substance: ASPIRIN
  10. ADVAIR HFA [Concomitant]
     Active Substance: FLUTICASONE PROPIONATE\SALMETEROL XINAFOATE
  11. DOXEPIN [Concomitant]
     Active Substance: DOXEPIN
  12. PLAVIX [Concomitant]
     Active Substance: CLOPIDOGREL BISULFATE
  13. POTASSIUM CHLORIDE. [Concomitant]
     Active Substance: POTASSIUM CHLORIDE
  14. LASIX [Concomitant]
     Active Substance: FUROSEMIDE
  15. SPIRIVA [Concomitant]
     Active Substance: TIOTROPIUM BROMIDE MONOHYDRATE
  16. KLONOPIN [Concomitant]
     Active Substance: CLONAZEPAM
  17. PRILOSEC [Concomitant]
     Active Substance: OMEPRAZOLE MAGNESIUM
  18. TYLENOL [Concomitant]
     Active Substance: ACETAMINOPHEN
  19. LETAIRIS [Suspect]
     Active Substance: AMBRISENTAN
     Route: 048
  20. SODIUM CHLORIDE/BENZYL ALCOHOL [Concomitant]
  21. XANAX [Concomitant]
     Active Substance: ALPRAZOLAM
  22. OXYMETAZOLINE 0.05% [Concomitant]

REACTIONS (4)
  - Peripheral swelling [Unknown]
  - Nasal congestion [Unknown]
  - Constipation [Unknown]
  - Memory impairment [Unknown]
